FAERS Safety Report 13475395 (Version 2)
Quarter: 2017Q3

REPORT INFORMATION
  Report Type: Spontaneous
  Country: US (occurrence: US)
  Receive Date: 20170424
  Receipt Date: 20170728
  Transmission Date: 20171127
  Serious: Yes (Other)
  Sender: FDA-Public Use
  Company Number: US-AMGEN-USASP2017041533

PATIENT
  Age: 67 Year
  Sex: Male
  Weight: 82.54 kg

DRUGS (7)
  1. ASPIRIN. [Concomitant]
     Active Substance: ASPIRIN
     Dosage: 325 UNK, QD
     Dates: start: 20141017
  2. MULTIVITAMIN [Concomitant]
     Active Substance: VITAMINS
     Dosage: UNK
  3. REPATHA [Suspect]
     Active Substance: EVOLOCUMAB
     Indication: TYPE IIA HYPERLIPIDAEMIA
     Dosage: 140 MG, Q2WK
     Route: 065
     Dates: start: 20170125
  4. REPATHA [Suspect]
     Active Substance: EVOLOCUMAB
     Dosage: UNK
     Route: 065
  5. COQ10 [Concomitant]
     Active Substance: UBIDECARENONE
     Dosage: UNK, QD
     Dates: start: 20151021
  6. FISH OIL [Concomitant]
     Active Substance: FISH OIL
     Dosage: UNK, QD
     Dates: start: 20141017
  7. NEURONTIN [Concomitant]
     Active Substance: GABAPENTIN
     Dosage: UNK

REACTIONS (5)
  - Oropharyngeal pain [Unknown]
  - Myalgia [Recovered/Resolved]
  - Rhinorrhoea [Unknown]
  - Cough [Unknown]
  - Eye pruritus [Unknown]

NARRATIVE: CASE EVENT DATE: 20170221
